FAERS Safety Report 6500254-1 (Version None)
Quarter: 2009Q4

REPORT INFORMATION
  Report Type: 
  Country: None (occurrence: None)
  Receive Date: 20091215
  Receipt Date: 20091215
  Transmission Date: 20100525
  Serious: Yes (Hospitalization)
  Sender: FDA-Public Use
  Company Number: None

PATIENT
  Age: 83 Year
  Sex: Male
  Weight: 82.5547 kg

DRUGS (1)
  1. AMBIEN CR [Suspect]
     Indication: INSOMNIA
     Dosage: 12 MG 1 TAB AT NITE
     Dates: start: 20081129, end: 20081220

REACTIONS (4)
  - ABNORMAL BEHAVIOUR [None]
  - CHEST DISCOMFORT [None]
  - DIZZINESS [None]
  - MEMORY IMPAIRMENT [None]
